FAERS Safety Report 8546041-4 (Version None)
Quarter: 2012Q3

REPORT INFORMATION
  Report Type: 
  Country: None (occurrence: None)
  Receive Date: 20120727
  Receipt Date: 20111208
  Transmission Date: 20120928
  Serious: No
  Sender: FDA-Public Use
  Company Number: US-ASTRAZENECA-2011SE73401

PATIENT
  Age: 56 Year
  Sex: Male

DRUGS (6)
  1. VALIUM [Concomitant]
     Dosage: HS
  2. SEROQUEL [Suspect]
     Indication: SLEEP DISORDER
     Route: 048
  3. TEMAZEPAM [Concomitant]
  4. EFFEXOR [Concomitant]
  5. AMARETTO [Concomitant]
  6. SEROQUEL [Suspect]
     Indication: POST-TRAUMATIC STRESS DISORDER
     Route: 048

REACTIONS (6)
  - OFF LABEL USE [None]
  - BLOOD PRESSURE INCREASED [None]
  - SELF-MEDICATION [None]
  - POST-TRAUMATIC STRESS DISORDER [None]
  - DRUG DOSE OMISSION [None]
  - INSOMNIA [None]
